FAERS Safety Report 4808680-3 (Version None)
Quarter: 2005Q4

REPORT INFORMATION
  Report Type: 
  Country: None (occurrence: None)
  Receive Date: 20051021
  Receipt Date: 20030911
  Transmission Date: 20060501
  Serious: No
  Sender: FDA-Public Use
  Company Number: DE_030912008

PATIENT
  Age: 61 Year
  Sex: Male

DRUGS (3)
  1. ZYPREXA [Suspect]
     Indication: BIPOLAR I DISORDER
     Dosage: 15 MG/DAY
     Dates: start: 20030618, end: 20030715
  2. LORAZEPAM [Concomitant]
  3. ERGENYL CHRONO [Concomitant]

REACTIONS (1)
  - LEUKOPENIA [None]
